FAERS Safety Report 4667752-7 (Version None)
Quarter: 2005Q2

REPORT INFORMATION
  Report Type: 
  Country: None (occurrence: None)
  Receive Date: 20050520
  Receipt Date: 20050513
  Transmission Date: 20051028
  Serious: Yes (Other)
  Sender: FDA-Public Use
  Company Number: US-GLAXOSMITHKLINE-A0558525A

PATIENT
  Age: 54 Year
  Sex: Female

DRUGS (1)
  1. WELLBUTRIN [Suspect]
     Indication: DEPRESSION
     Dosage: 300MG PER DAY
     Route: 048

REACTIONS (3)
  - DEPRESSION [None]
  - FEELING ABNORMAL [None]
  - SUICIDAL IDEATION [None]
